FAERS Safety Report 10426006 (Version 2)
Quarter: 2014Q4

REPORT INFORMATION
  Report Type: Spontaneous
  Country: US (occurrence: US)
  Receive Date: 20140903
  Receipt Date: 20141015
  Transmission Date: 20150528
  Serious: No
  Sender: FDA-Public Use
  Company Number: US-BIOGENIDEC-2014BI087241

PATIENT
  Age: 43 Year
  Sex: Female

DRUGS (2)
  1. TECFIDERA [Suspect]
     Active Substance: DIMETHYL FUMARATE
     Indication: MULTIPLE SCLEROSIS
  2. TECFIDERA [Suspect]
     Active Substance: DIMETHYL FUMARATE
     Indication: MULTIPLE SCLEROSIS
     Route: 048
     Dates: start: 20140804, end: 20140813

REACTIONS (9)
  - Feeling abnormal [Recovered/Resolved]
  - Hypersomnia [Unknown]
  - Sedation [Recovered/Resolved]
  - Fatigue [Unknown]
  - Vomiting [Recovered/Resolved]
  - Chills [Recovered/Resolved]
  - Somnolence [Recovered/Resolved]
  - Hypoaesthesia oral [Recovered/Resolved]
  - Gingival swelling [Unknown]

NARRATIVE: CASE EVENT DATE: 20140813
